FAERS Safety Report 17373965 (Version 1)
Quarter: 2020Q1

REPORT INFORMATION
  Report Type: Spontaneous
  Country: US (occurrence: US)
  Receive Date: 20200205
  Receipt Date: 20200205
  Transmission Date: 20200409
  Serious: Yes (Other)
  Sender: FDA-Public Use
  Company Number: US-ASTRAZENECA-2020SE16821

PATIENT
  Sex: Male

DRUGS (5)
  1. BYDUREON BCISE [Suspect]
     Active Substance: EXENATIDE
     Route: 065
     Dates: start: 2016
  2. FARXIGA [Suspect]
     Active Substance: DAPAGLIFLOZIN PROPANEDIOL
     Dosage: EVERY MORNING
     Route: 048
  3. METFORMIN [Concomitant]
     Active Substance: METFORMIN HYDROCHLORIDE
     Dosage: 500 IN THE MORNING AND 1000 IN EVENING
  4. TOUJEO [Concomitant]
     Active Substance: INSULIN GLARGINE
     Dosage: EVERY MORNING
  5. METFORMIN [Concomitant]
     Active Substance: METFORMIN HYDROCHLORIDE
     Dosage: 1000 TWICE A DAY

REACTIONS (4)
  - Product dose omission [Unknown]
  - Wrong technique in device usage process [Unknown]
  - Balanoposthitis [Unknown]
  - Polyuria [Unknown]
